FAERS Safety Report 7337676-5 (Version None)
Quarter: 2011Q1

REPORT INFORMATION
  Report Type: 
  Country: None (occurrence: None)
  Receive Date: 20110224
  Receipt Date: 20110210
  Transmission Date: 20110831
  Serious: Yes (Other)
  Sender: FDA-Public Use
  Company Number: GER/GER/11/0017469

PATIENT
  Age: 30 Year
  Sex: Female

DRUGS (6)
  1. DIOVAN HCT [Suspect]
     Indication: PRODUCT USED FOR UNKNOWN INDICATION
     Dosage: ORAL
     Route: 048
  2. IBUPROFEN [Suspect]
     Indication: PRODUCT USED FOR UNKNOWN INDICATION
     Dosage: 2400 MG, ORAL
     Route: 048
  3. MIRTAZAPINE [Suspect]
     Indication: PRODUCT USED FOR UNKNOWN INDICATION
     Dosage: 1350 MG, ORAL
     Route: 048
  4. AMLODIPINE BESYLATE [Suspect]
     Indication: PRODUCT USED FOR UNKNOWN INDICATION
     Dosage: 100 MG, ORAL
     Route: 048
  5. DIMENHYDRINATE [Suspect]
     Indication: PRODUCT USED FOR UNKNOWN INDICATION
     Dosage: 1500 MG, ORAL
     Route: 048
  6. DOMINAL FORTE [Suspect]
     Indication: PRODUCT USED FOR UNKNOWN INDICATION
     Dosage: 2000 MG, ORAL
     Route: 048

REACTIONS (3)
  - COMA [None]
  - OVERDOSE [None]
  - HYPOTENSION [None]
